FAERS Safety Report 15710475 (Version 9)
Quarter: 2021Q3

REPORT INFORMATION
  Report Type: Spontaneous
  Country: ES (occurrence: ES)
  Receive Date: 20181211
  Receipt Date: 20210715
  Transmission Date: 20211014
  Serious: Yes (Life-Threatening, Hospitalization, Other)
  Sender: FDA-Public Use
  Company Number: ES-ELI_LILLY_AND_COMPANY-ES201812002199

PATIENT
  Age: 44 Year
  Sex: Female

DRUGS (3)
  1. DULOXETINE HYDROCHLORIDE. [Suspect]
     Active Substance: DULOXETINE HYDROCHLORIDE
     Indication: PRODUCT USED FOR UNKNOWN INDICATION
     Dosage: 30 UNK
     Route: 065
  2. LORAZEPAM. [Concomitant]
     Active Substance: LORAZEPAM
     Indication: MIXED ANXIETY AND DEPRESSIVE DISORDER
     Dosage: UNK, UNKNOWN
     Route: 065
  3. DULOXETINE HYDROCHLORIDE. [Suspect]
     Active Substance: DULOXETINE HYDROCHLORIDE
     Dosage: 2400 MG, 80 TABLETS OF DULOXETINE 30 MG
     Route: 048

REACTIONS (16)
  - Vision blurred [Recovered/Resolved]
  - Drug level above therapeutic [Recovered/Resolved]
  - Overdose [Recovered/Resolved]
  - Chest pain [Unknown]
  - Delirium [Recovered/Resolved]
  - Memory impairment [Recovered/Resolved]
  - Leukocytosis [Recovered/Resolved]
  - Disorientation [Recovered/Resolved]
  - Personality disorder [Recovered/Resolved]
  - Tachycardia [Recovered/Resolved]
  - Palpitations [Unknown]
  - Intentional self-injury [Recovered/Resolved]
  - Hallucination, visual [Recovered/Resolved]
  - Staphylococcal infection [Recovered/Resolved]
  - Opsoclonus myoclonus [Recovered/Resolved]
  - Neutrophilia [Recovered/Resolved]
